APPROVED DRUG PRODUCT: THEOPHYLLINE
Active Ingredient: THEOPHYLLINE
Strength: 260MG
Dosage Form/Route: CAPSULE, EXTENDED RELEASE;ORAL
Application: A087462 | Product #001
Applicant: SANDOZ INC
Approved: May 11, 1982 | RLD: No | RS: No | Type: DISCN